FAERS Safety Report 17223920 (Version 1)
Quarter: 2020Q1

REPORT INFORMATION
  Report Type: Report from Study
  Country: US (occurrence: US)
  Receive Date: 20200102
  Receipt Date: 20200102
  Transmission Date: 20200409
  Serious: No
  Sender: FDA-Public Use
  Company Number: US-ROCHE-2493747

PATIENT
  Age: 50 Year
  Sex: Female
  Weight: 63.56 kg

DRUGS (9)
  1. BACLOFEN. [Concomitant]
     Active Substance: BACLOFEN
     Indication: MUSCLE SPASMS
     Route: 048
  2. LYSINE [Concomitant]
     Active Substance: LYSINE
     Route: 048
  3. PECTASOL C [Concomitant]
  4. ALAMAX [Concomitant]
     Indication: GASTROINTESTINAL DISORDER
     Route: 065
  5. OCREVUS [Suspect]
     Active Substance: OCRELIZUMAB
     Indication: RELAPSING-REMITTING MULTIPLE SCLEROSIS
     Dosage: 24/APR/2018, 23/OCT/2018, 24/APR/2019
     Route: 042
     Dates: start: 20180403
  6. XANAX [Concomitant]
     Active Substance: ALPRAZOLAM
     Indication: ANXIETY
     Route: 048
  7. VITAMIN D3 [Concomitant]
     Active Substance: CHOLECALCIFEROL
     Route: 048
  8. FISH OIL [Concomitant]
     Active Substance: FISH OIL
     Route: 048
  9. DIETARY SUPPLEMENT [Concomitant]
     Active Substance: DIETARY SUPPLEMENT
     Route: 050

REACTIONS (2)
  - Nasopharyngitis [Recovered/Resolved]
  - Oral herpes [Recovered/Resolved]

NARRATIVE: CASE EVENT DATE: 20191020
